FAERS Safety Report 23770641 (Version 1)
Quarter: 2024Q2

REPORT INFORMATION
  Report Type: Spontaneous
  Country: ES (occurrence: GB)
  Receive Date: 20240422
  Receipt Date: 20240422
  Transmission Date: 20240716
  Serious: Yes (Hospitalization, Disabling, Other)
  Sender: FDA-Public Use
  Company Number: GB-Breckenridge Pharmaceutical, Inc.-2155869

PATIENT
  Age: 33 Year
  Sex: Male
  Weight: 81 kg

DRUGS (1)
  1. DULOXETINE [Suspect]
     Active Substance: DULOXETINE
     Indication: Anxiety
     Route: 048

REACTIONS (5)
  - Sexual dysfunction [Not Recovered/Not Resolved]
  - Male orgasmic disorder [Unknown]
  - Genital hypoaesthesia [Not Recovered/Not Resolved]
  - Genital pain [Not Recovered/Not Resolved]
  - Loss of libido [Not Recovered/Not Resolved]
